FAERS Safety Report 6081768-8 (Version None)
Quarter: 2009Q1

REPORT INFORMATION
  Report Type: 
  Country: None (occurrence: None)
  Receive Date: 20090128
  Receipt Date: 20080429
  Transmission Date: 20090719
  Serious: Yes (Other)
  Sender: FDA-Public Use
  Company Number: 170950USA

PATIENT
  Sex: Female

DRUGS (4)
  1. NAPROXEN [Suspect]
  2. CELECOXIB [Suspect]
     Indication: PAIN
     Dosage: 200 MG (200 MG, 1 IN 1 D)
     Dates: start: 19980101
  3. LORAZEPAM [Concomitant]
  4. MISOPROSTOL [Concomitant]

REACTIONS (5)
  - ABDOMINAL DISCOMFORT [None]
  - DERMATITIS [None]
  - HERPES ZOSTER [None]
  - LICHEN MYXOEDEMATOSUS [None]
  - SCLERODERMA [None]
